FAERS Safety Report 14312508 (Version 2)
Quarter: 2018Q1

REPORT INFORMATION
  Report Type: Spontaneous
  Country: US (occurrence: US)
  Receive Date: 20171221
  Receipt Date: 20180209
  Transmission Date: 20180509
  Serious: No
  Sender: FDA-Public Use
  Company Number: US-PFIZER INC-2017540665

PATIENT
  Age: 67 Year
  Sex: Female
  Weight: 73 kg

DRUGS (5)
  1. XELJANZ XR [Suspect]
     Active Substance: TOFACITINIB CITRATE
     Indication: RHEUMATOID ARTHRITIS
     Dosage: 11 MG, 1X/DAY
     Route: 048
     Dates: start: 201712, end: 20180131
  2. SYNTHROID [Concomitant]
     Active Substance: LEVOTHYROXINE SODIUM
     Indication: HYPOTHYROIDISM
     Dosage: 100 UG, 1X/DAY
     Route: 048
  3. METHOTREXATE. [Concomitant]
     Active Substance: METHOTREXATE
     Dosage: UNK UNK, WEEKLY (2.5MG TABLET, 4 TABLETS WEEKLY)
  4. ATENOLOL. [Concomitant]
     Active Substance: ATENOLOL
     Indication: HYPERTENSION
     Dosage: 50 MG, DAILY
  5. METHOTREXATE. [Concomitant]
     Active Substance: METHOTREXATE
     Indication: RHEUMATOID ARTHRITIS
     Dosage: UNK UNK, WEEKLY (2.5MG TABLET, 6 TABLETS WEEKLY)

REACTIONS (12)
  - Influenza like illness [Recovering/Resolving]
  - Tenderness [Unknown]
  - Headache [Unknown]
  - Abdominal pain [Recovering/Resolving]
  - Rhinorrhoea [Unknown]
  - Nasal congestion [Recovering/Resolving]
  - Weight increased [Unknown]
  - Abdominal distension [Unknown]
  - Abnormal faeces [Not Recovered/Not Resolved]
  - Pain [Recovering/Resolving]
  - Limb discomfort [Recovering/Resolving]
  - Flank pain [Unknown]

NARRATIVE: CASE EVENT DATE: 2017
